FAERS Safety Report 7418667-2 (Version None)
Quarter: 2011Q2

REPORT INFORMATION
  Report Type: 
  Country: None (occurrence: None)
  Receive Date: 20110407
  Receipt Date: 20110402
  Transmission Date: 20111010
  Serious: Yes (Life-Threatening)
  Sender: FDA-Public Use
  Company Number: CHNAB-11-0268

PATIENT
  Sex: Female

DRUGS (5)
  1. ABRAXANE (PACLITAXEL) [Suspect]
     Indication: BREAST CANCER METASTATIC
     Dates: start: 20110331, end: 20110331
  2. FLUOROURACIL [Concomitant]
  3. NUTRITIONAL SUPPORT [Concomitant]
  4. CISPLATIN [Concomitant]
  5. MITOMYCIN [Concomitant]

REACTIONS (7)
  - ATRIAL FIBRILLATION [None]
  - GENERAL PHYSICAL HEALTH DETERIORATION [None]
  - HEADACHE [None]
  - MUSCLE TIGHTNESS [None]
  - TRISMUS [None]
  - MYDRIASIS [None]
  - ANAPHYLACTIC SHOCK [None]
